FAERS Safety Report 8388578-7 (Version None)
Quarter: 2012Q2

REPORT INFORMATION
  Report Type: 
  Country: None (occurrence: None)
  Receive Date: 20120525
  Receipt Date: 20120514
  Transmission Date: 20120825
  Serious: No
  Sender: FDA-Public Use
  Company Number: US-ASTRAZENECA-2012SE30838

PATIENT
  Age: 50 Year
  Sex: Female
  Weight: 65.8 kg

DRUGS (4)
  1. NEXIUM [Suspect]
     Indication: GASTROOESOPHAGEAL REFLUX DISEASE
     Route: 048
     Dates: start: 20120201, end: 20120201
  2. NEXIUM [Suspect]
     Route: 048
     Dates: start: 20120413
  3. NEXIUM [Suspect]
     Route: 048
     Dates: start: 20120222
  4. ZOCOR [Concomitant]
     Indication: GASTROOESOPHAGEAL REFLUX DISEASE

REACTIONS (2)
  - OFF LABEL USE [None]
  - SENSATION OF FOREIGN BODY [None]
